FAERS Safety Report 6210738-1 (Version None)
Quarter: 2009Q2

REPORT INFORMATION
  Report Type: 
  Country: None (occurrence: None)
  Receive Date: 20090528
  Receipt Date: 20090528
  Transmission Date: 20091009
  Serious: Yes (Other)
  Sender: FDA-Public Use
  Company Number: None

PATIENT
  Sex: Male
  Weight: 102.0593 kg

DRUGS (1)
  1. ENBREL [Suspect]
     Dosage: 50 MG EVERY WEEK SQ
     Dates: start: 20040101, end: 20090505

REACTIONS (1)
  - RENAL CANCER STAGE I [None]
